FAERS Safety Report 10314583 (Version 19)
Quarter: 2015Q3

REPORT INFORMATION
  Report Type: Report from Study
  Country: KR (occurrence: KR)
  Receive Date: 20140718
  Receipt Date: 20150924
  Transmission Date: 20151125
  Serious: Yes (Death, Hospitalization, Other)
  Sender: FDA-Public Use
  Company Number: KR-BAYER-2014-093883

PATIENT
  Age: 75 Year
  Sex: Female
  Weight: 64 kg

DRUGS (7)
  1. STIVARGA [Suspect]
     Active Substance: REGORAFENIB
     Indication: COLORECTAL CANCER METASTATIC
     Dosage: 120 MG, QD
     Route: 048
     Dates: start: 20140701, end: 20140707
  2. STIVARGA [Suspect]
     Active Substance: REGORAFENIB
     Indication: COLORECTAL CANCER METASTATIC
     Dosage: 160 MG, QD
     Route: 048
     Dates: start: 20140612, end: 20140626
  3. STIVARGA [Suspect]
     Active Substance: REGORAFENIB
     Indication: COLORECTAL CANCER METASTATIC
     Dosage: 80 MG, QD
     Route: 048
     Dates: start: 20140714, end: 20140824
  4. STIVARGA [Suspect]
     Active Substance: REGORAFENIB
     Indication: COLORECTAL CANCER METASTATIC
     Dosage: 80 MG, QD
     Route: 048
     Dates: start: 20140901, end: 20140922
  5. STIVARGA [Suspect]
     Active Substance: REGORAFENIB
     Indication: COLORECTAL CANCER METASTATIC
     Dosage: 80 MG, QD
     Route: 048
     Dates: start: 20140929, end: 20141005
  6. STIVARGA [Suspect]
     Active Substance: REGORAFENIB
     Indication: COLORECTAL CANCER METASTATIC
     Dosage: 120 MG, QD
     Route: 048
  7. STIVARGA [Suspect]
     Active Substance: REGORAFENIB
     Indication: COLORECTAL CANCER METASTATIC
     Dosage: 80 MG, QD
     Route: 048
     Dates: start: 20150105, end: 20150625

REACTIONS (33)
  - Cataract [None]
  - Glossodynia [Not Recovered/Not Resolved]
  - Gait disturbance [None]
  - Lethargy [None]
  - Musculoskeletal stiffness [Not Recovered/Not Resolved]
  - Oral pain [None]
  - Gingival swelling [None]
  - Spinal pain [None]
  - Death [Fatal]
  - Feeding disorder [None]
  - Asthenia [None]
  - Paraesthesia oral [None]
  - Myalgia [None]
  - Tongue disorder [Not Recovered/Not Resolved]
  - Stomatitis [None]
  - Back pain [None]
  - Skin induration [None]
  - Hyperhidrosis [None]
  - Hyperhidrosis [Not Recovered/Not Resolved]
  - Pruritus [None]
  - Glossodynia [None]
  - Dysgeusia [None]
  - Productive cough [Not Recovered/Not Resolved]
  - Weight decreased [None]
  - Tongue ulceration [None]
  - Dry mouth [None]
  - Skin exfoliation [None]
  - Fatigue [None]
  - Diabetes mellitus [None]
  - Decreased appetite [None]
  - Hyperchlorhydria [None]
  - Dizziness [None]
  - Aphthous ulcer [None]

NARRATIVE: CASE EVENT DATE: 201509
